FAERS Safety Report 20557491 (Version 1)
Quarter: 2022Q1

REPORT INFORMATION
  Report Type: Report from Study
  Country: PE (occurrence: None)
  Receive Date: 20220307
  Receipt Date: 20220307
  Transmission Date: 20220423
  Serious: Yes (Death)
  Sender: FDA-Public Use
  Company Number: PE-ROCHE-3041508

PATIENT
  Age: 59 Year
  Sex: Female

DRUGS (4)
  1. ATEZOLIZUMAB [Suspect]
     Active Substance: ATEZOLIZUMAB
     Indication: Non-small cell lung cancer
     Dosage: DATE OF MOST RECENT DOSE OF ATEZOLIZUMAB (1200 MG) PRIOR TO AE AND SAE ONSET: 13/JAN/2022 AT 7:25 AM
     Route: 041
     Dates: start: 20210528
  2. TRAMADOL [Concomitant]
     Active Substance: TRAMADOL
     Indication: Pain
     Route: 048
     Dates: start: 20191201, end: 20220123
  3. TRAMADOL [Concomitant]
     Active Substance: TRAMADOL
     Route: 048
     Dates: start: 20220124
  4. DEXTROMETHORPHAN [Concomitant]
     Active Substance: DEXTROMETHORPHAN
     Indication: Cough
     Route: 048
     Dates: start: 20211111

REACTIONS (1)
  - Lung neoplasm malignant [Fatal]

NARRATIVE: CASE EVENT DATE: 20220221
